FAERS Safety Report 5604373-3 (Version None)
Quarter: 2008Q1

REPORT INFORMATION
  Report Type: 
  Country: None (occurrence: None)
  Receive Date: 20080128
  Receipt Date: 20080114
  Transmission Date: 20080703
  Serious: Yes (Other)
  Sender: FDA-Public Use
  Company Number: US-ELI_LILLY_AND_COMPANY-US200711005469

PATIENT
  Sex: Female

DRUGS (6)
  1. CYMBALTA [Suspect]
     Indication: DEPRESSION
     Dosage: 90 MG, DAILY (1/D)
  2. CYMBALTA [Suspect]
     Dosage: 60 MG, QOD
  3. OTHER CHOLESTEROL AND TRIGLYCERIDE REDUCERS [Concomitant]
  4. ZETIA [Concomitant]
  5. CELEBREX [Concomitant]
  6. LYRICA [Concomitant]

REACTIONS (2)
  - NEOPLASM MALIGNANT [None]
  - PAIN [None]
